FAERS Safety Report 21329823 (Version 1)
Quarter: 2022Q3

REPORT INFORMATION
  Report Type: Spontaneous
  Country: US (occurrence: US)
  Receive Date: 20220913
  Receipt Date: 20220913
  Transmission Date: 20221026
  Serious: Yes (Other)
  Sender: FDA-Public Use
  Company Number: US-drreddys-SPO/USA/22/0154319

PATIENT
  Age: 29 Year
  Sex: Female

DRUGS (1)
  1. ZENATANE [Suspect]
     Active Substance: ISOTRETINOIN
     Indication: Acne
     Dosage: RMA ISSUE DATE: 26 APRIL 2022 10:51:32 AM, 31 MAY 2022 09:16:36 AM, 24 JUNE 2022 10:51:01 AM, 03 AUG

REACTIONS (1)
  - Suicidal ideation [Unknown]
